FAERS Safety Report 6994568-9 (Version None)
Quarter: 2010Q3

REPORT INFORMATION
  Report Type: 
  Country: None (occurrence: None)
  Receive Date: 20100916
  Receipt Date: 20100916
  Transmission Date: 20110219
  Serious: Yes (Life-Threatening)
  Sender: FDA-Public Use
  Company Number: None

PATIENT
  Age: 54 Year
  Sex: Female
  Weight: 104.3273 kg

DRUGS (2)
  1. ULORIC [Suspect]
     Indication: GOUT
     Dosage: 1 DAILY SL
     Route: 060
  2. ULORIC [Suspect]
     Indication: GOUT
     Dosage: 1 DAILY SL
     Route: 060

REACTIONS (1)
  - RENAL IMPAIRMENT [None]
